FAERS Safety Report 9671680 (Version 1)
Quarter: 2013Q4

REPORT INFORMATION
  Report Type: Spontaneous
  Country: US (occurrence: None)
  Receive Date: 20131105
  Receipt Date: 20131105
  Transmission Date: 20140711
  Serious: Yes (Hospitalization)
  Sender: FDA-Public Use
  Company Number: None

PATIENT
  Age: 96 Year
  Sex: Female
  Weight: 47.6 kg

DRUGS (6)
  1. ALTEPLASE [Suspect]
     Indication: CEREBROVASCULAR ACCIDENT
     Route: 042
     Dates: start: 20110928, end: 20110928
  2. INSULIN ASPART [Concomitant]
  3. CLONIDINE [Concomitant]
  4. LABETALOL [Concomitant]
  5. MORPHINE [Concomitant]
  6. NICARDIPINE [Concomitant]

REACTIONS (1)
  - Haemorrhagic transformation stroke [None]
